FAERS Safety Report 19930287 (Version 1)
Quarter: 2021Q4

REPORT INFORMATION
  Report Type: Spontaneous
  Country: US (occurrence: US)
  Receive Date: 20211008
  Receipt Date: 20211008
  Transmission Date: 20220303
  Serious: No
  Sender: FDA-Public Use
  Company Number: US-BAUSCH-BL-2021-033240

PATIENT
  Age: 69 Year
  Sex: Female

DRUGS (1)
  1. BENZAMYCIN [Suspect]
     Active Substance: BENZOYL PEROXIDE\ERYTHROMYCIN
     Indication: Acne
     Dosage: FOR 8 OR 9 MONTHS
     Route: 061
     Dates: start: 1996

REACTIONS (4)
  - Application site haemorrhage [Unknown]
  - Application site pain [Unknown]
  - Product residue present [Not Recovered/Not Resolved]
  - Application site exfoliation [Unknown]
